FAERS Safety Report 7794042 (Version 2)
Quarter: 2013Q1

REPORT INFORMATION
  Report Type: Spontaneous
  Country: US (occurrence: None)
  Receive Date: 20110111
  Receipt Date: 20130213
  Transmission Date: 20140127
  Serious: Yes (Other)
  Sender: FDA-Public Use
  Company Number: AUR-APL-2011-00078

PATIENT
  Age: 54 Year
  Sex: Male
  Weight: 97.05 kg

DRUGS (6)
  1. HYDROCHLOROTHIAZIDE (HYDROCHLOROTHIAZIDE) [Suspect]
     Indication: DIURETIC THERAPY
     Dosage: 12.5MG - QD - ORAL
     Route: 048
     Dates: start: 20101201, end: 201012
  2. HYDROCHLOROTHIAZIDE (HYDROCHLOROTHIAZIDE) [Suspect]
     Indication: HEADACHE
     Dosage: 12.5MG - QD - ORAL
     Route: 048
     Dates: start: 20101201, end: 201012
  3. LYRICA (PREGABALIN) [Suspect]
     Indication: NEURALGIA
     Dosage: 150MG - BID - ORAL
     Route: 048
     Dates: start: 2008
  4. LYRICA (PREGABALIN) [Suspect]
     Dosage: 150MG - BID - ORAL
     Route: 048
     Dates: start: 2008
  5. LOTREL (LOTREL) [Concomitant]
  6. PRILOSEC [Concomitant]

REACTIONS (4)
  - Headache [None]
  - Blood glucose increased [None]
  - Neuralgia [None]
  - Drug ineffective [None]
